FAERS Safety Report 19442033 (Version 1)
Quarter: 2021Q2

REPORT INFORMATION
  Report Type: Spontaneous
  Country: US (occurrence: US)
  Receive Date: 20210618
  Receipt Date: 20210618
  Transmission Date: 20210717
  Serious: Yes (Other)
  Sender: FDA-Public Use
  Company Number: None

PATIENT
  Age: 67 Year
  Sex: Male
  Weight: 89.55 kg

DRUGS (10)
  1. NIVOLUMAB [Suspect]
     Active Substance: NIVOLUMAB
     Indication: PROSTATE CANCER
     Dosage: ?          OTHER FREQUENCY:EVERY 28 DAYS;?
     Route: 042
     Dates: start: 20210520, end: 20210520
  2. ATORVASTATIN [Concomitant]
     Active Substance: ATORVASTATIN
     Dates: start: 20040101
  3. LISINOPRIL. [Concomitant]
     Active Substance: LISINOPRIL
     Dates: start: 20040101
  4. METOPROLOL SUCCINATE. [Concomitant]
     Active Substance: METOPROLOL SUCCINATE
     Dates: start: 20040101
  5. TRAZODONE [Concomitant]
     Active Substance: TRAZODONE HYDROCHLORIDE
     Dates: start: 20190101
  6. NAPROXEN. [Concomitant]
     Active Substance: NAPROXEN
     Dates: start: 20190101
  7. ASPIRIN. [Concomitant]
     Active Substance: ASPIRIN
     Dates: start: 20040101
  8. DULOXETINE. [Concomitant]
     Active Substance: DULOXETINE
     Dates: start: 20090101
  9. LANSOPRAZOLE. [Concomitant]
     Active Substance: LANSOPRAZOLE
     Dates: start: 19990101
  10. OMEGA 3?DHA?EPA?FISH OIL [Concomitant]
     Active Substance: DOCONEXENT\ ICOSAPENT\ FISH OIL\ OMEGA-3 FATTY ACIDS
     Dates: start: 20190101

REACTIONS (6)
  - Peripheral swelling [None]
  - Arthritis [None]
  - Sleep disorder [None]
  - Loss of personal independence in daily activities [None]
  - Arthralgia [None]
  - Erythema [None]

NARRATIVE: CASE EVENT DATE: 20210617
